FAERS Safety Report 5521852-8 (Version None)
Quarter: 2007Q4

REPORT INFORMATION
  Report Type: 
  Country: None (occurrence: None)
  Receive Date: 20071120
  Receipt Date: 20071113
  Transmission Date: 20080405
  Serious: Yes (Death, Hospitalization)
  Sender: FDA-Public Use
  Company Number: US-ROCHE-508943

PATIENT
  Age: 59 Year
  Sex: Female

DRUGS (2)
  1. CAPECITABINE [Suspect]
     Dosage: DOSE ESCALATION AT CYCLE 2
     Route: 048
  2. CAPECITABINE [Suspect]
     Dosage: 2 WEEKS ON, 1 WEEK OFF
     Route: 048

REACTIONS (4)
  - DIARRHOEA [None]
  - HYPOTENSION [None]
  - MULTI-ORGAN FAILURE [None]
  - RESPIRATORY DISTRESS [None]
